FAERS Safety Report 19447755 (Version 1)
Quarter: 2021Q2

REPORT INFORMATION
  Report Type: Spontaneous
  Country: US (occurrence: US)
  Receive Date: 20210621
  Receipt Date: 20210621
  Transmission Date: 20210717
  Serious: Yes (Death)
  Sender: FDA-Public Use
  Company Number: None

PATIENT
  Age: 68 Year
  Sex: Male

DRUGS (1)
  1. ENTECAVIR 0.5MG [Suspect]
     Active Substance: ENTECAVIR
     Route: 048

REACTIONS (1)
  - Death [None]
